FAERS Safety Report 4436110-2 (Version None)
Quarter: 2004Q3

REPORT INFORMATION
  Report Type: 
  Country: None (occurrence: None)
  Receive Date: 20040726
  Receipt Date: 20040510
  Transmission Date: 20050211
  Serious: No
  Sender: FDA-Public Use
  Company Number: USA030433593

PATIENT
  Age: 53 Year
  Sex: Female
  Weight: 54 kg

DRUGS (3)
  1. FORTEO [Suspect]
     Indication: OSTEOPOROSIS
     Dosage: 20 UG/DAY
     Dates: start: 20030201
  2. LEVOXYL [Concomitant]
  3. SYNTHROID [Concomitant]

REACTIONS (10)
  - ABDOMINAL PAIN LOWER [None]
  - ALOPECIA [None]
  - BONE PAIN [None]
  - DECREASED APPETITE [None]
  - FEELING COLD [None]
  - HYPERCALCAEMIA [None]
  - MICTURITION URGENCY [None]
  - NOCTURIA [None]
  - SENSORY DISTURBANCE [None]
  - WEIGHT DECREASED [None]
